FAERS Safety Report 5306345-5 (Version None)
Quarter: 2007Q2

REPORT INFORMATION
  Report Type: 
  Country: None (occurrence: None)
  Receive Date: 20070424
  Receipt Date: 20070416
  Transmission Date: 20071010
  Serious: Yes (Disabling, Other)
  Sender: FDA-Public Use
  Company Number: US-ELI_LILLY_AND_COMPANY-US200703005253

PATIENT
  Sex: Male

DRUGS (5)
  1. HUMULIN N [Suspect]
     Indication: DIABETES MELLITUS
     Dosage: UNK, AS NEEDED
  2. HUMULIN R [Suspect]
     Indication: DIABETES MELLITUS
     Dosage: UNK, AS NEEDED
  3. KLONOPIN [Concomitant]
  4. ASPIRIN [Concomitant]
  5. HUMULIN R [Suspect]
     Dosage: U-500

REACTIONS (2)
  - ANGINA PECTORIS [None]
  - STERNAL INJURY [None]
